FAERS Safety Report 12831970 (Version 2)
Quarter: 2016Q4

REPORT INFORMATION
  Report Type: Other
  Country: US (occurrence: US)
  Receive Date: 20161010
  Receipt Date: 20161215
  Transmission Date: 20170207
  Serious: No
  Sender: FDA-Public Use
  Company Number: US-SHIRE-US201613606

PATIENT
  Sex: Female

DRUGS (1)
  1. VYVANSE [Suspect]
     Active Substance: LISDEXAMFETAMINE DIMESYLATE
     Indication: PRODUCT USED FOR UNKNOWN INDICATION
     Dosage: UNK, UNKNOWN
     Route: 048

REACTIONS (6)
  - Irritability [Recovered/Resolved]
  - Drug dose omission [Recovered/Resolved]
  - Restless legs syndrome [Recovered/Resolved]
  - Nervousness [Unknown]
  - Fatigue [Recovered/Resolved]
  - Withdrawal syndrome [Recovered/Resolved]
